FAERS Safety Report 19939460 (Version 3)
Quarter: 2021Q4

REPORT INFORMATION
  Report Type: Spontaneous
  Country: CA (occurrence: CA)
  Receive Date: 20211011
  Receipt Date: 20211027
  Transmission Date: 20220303
  Serious: Yes (Other)
  Sender: FDA-Public Use
  Company Number: CA-PFIZER INC-2021222878

PATIENT
  Age: 64 Year
  Sex: Male

DRUGS (2)
  1. RUXIENCE [Suspect]
     Active Substance: RITUXIMAB-PVVR
     Indication: Immunoglobulin G4 related disease
     Dosage: 1000 MG AT DAY 0 AND DAY 14
     Route: 042
     Dates: start: 20210416, end: 202104
  2. RUXIENCE [Suspect]
     Active Substance: RITUXIMAB-PVVR
     Dosage: 1000 MG AT DAY 0 AND DAY 14
     Route: 042
     Dates: start: 20210507

REACTIONS (8)
  - Renal impairment [Not Recovered/Not Resolved]
  - Chronic kidney disease [Unknown]
  - Off label use [Unknown]
  - Tooth disorder [Not Recovered/Not Resolved]
  - Tooth infection [Unknown]
  - Proteinuria [Not Recovered/Not Resolved]
  - Malaise [Unknown]
  - Nausea [Recovered/Resolved]

NARRATIVE: CASE EVENT DATE: 20210101
